FAERS Safety Report 25769304 (Version 1)
Quarter: 2025Q3

REPORT INFORMATION
  Report Type: Spontaneous
  Country: US (occurrence: US)
  Receive Date: 20250906
  Receipt Date: 20250906
  Transmission Date: 20251021
  Serious: No
  Sender: BAUSCH AND LOMB
  Company Number: US-BAUSCHBL-2025BNL015410

PATIENT
  Sex: Female

DRUGS (1)
  1. BESIVANCE [Suspect]
     Active Substance: BESIFLOXACIN
     Indication: Eye infection
     Dosage: (8AM, 2PM AND 8PM)
     Route: 047
     Dates: start: 20250829

REACTIONS (8)
  - Ocular hyperaemia [Unknown]
  - Burning sensation [Unknown]
  - Pruritus [Unknown]
  - Eye swelling [Unknown]
  - Erythema [Unknown]
  - Scab [Unknown]
  - Lacrimation increased [Unknown]
  - Eye irritation [Unknown]

NARRATIVE: CASE EVENT DATE: 20250829
